FAERS Safety Report 21372833 (Version 3)
Quarter: 2022Q4

REPORT INFORMATION
  Report Type: Report from Study
  Country: US (occurrence: US)
  Receive Date: 20220924
  Receipt Date: 20221115
  Transmission Date: 20230113
  Serious: Yes (Other)
  Sender: FDA-Public Use
  Company Number: US-ABBVIE-22K-163-4419548-00

PATIENT
  Sex: Female

DRUGS (4)
  1. IMBRUVICA [Suspect]
     Active Substance: IBRUTINIB
     Indication: Diffuse large B-cell lymphoma
     Dosage: THERAPY START DATE 13 MAY 2022
     Route: 048
     Dates: end: 202205
  2. IMBRUVICA [Suspect]
     Active Substance: IBRUTINIB
     Indication: Diffuse large B-cell lymphoma
     Dosage: THERAPY START DATE MAY 2022
     Route: 048
     Dates: end: 202205
  3. IMBRUVICA [Suspect]
     Active Substance: IBRUTINIB
     Indication: Diffuse large B-cell lymphoma
     Route: 048
     Dates: start: 2022, end: 2022
  4. IMBRUVICA [Suspect]
     Active Substance: IBRUTINIB
     Indication: Diffuse large B-cell lymphoma
     Route: 048
     Dates: start: 2022

REACTIONS (17)
  - Presyncope [Unknown]
  - Eructation [Unknown]
  - Urinary tract infection [Unknown]
  - Depression [Unknown]
  - Allergic cough [Unknown]
  - Respiratory disorder [Unknown]
  - Renal function test abnormal [Unknown]
  - Dizziness [Unknown]
  - Diarrhoea [Recovered/Resolved]
  - Malaise [Unknown]
  - Diarrhoea [Unknown]
  - Sneezing [Unknown]
  - Headache [Unknown]
  - Eye discharge [Unknown]
  - Ageusia [Unknown]
  - Oxygen saturation decreased [Unknown]
  - Fatigue [Unknown]

NARRATIVE: CASE EVENT DATE: 20220101
